FAERS Safety Report 4546265-7 (Version None)
Quarter: 2005Q1

REPORT INFORMATION
  Report Type: 
  Country: None (occurrence: None)
  Receive Date: 20050103
  Receipt Date: 20041220
  Transmission Date: 20050727
  Serious: Yes (Other)
  Sender: FDA-Public Use
  Company Number: 2004099920

PATIENT
  Age: 82 Year
  Sex: Male

DRUGS (13)
  1. ATARAX [Suspect]
     Indication: ILL-DEFINED DISORDER
     Dosage: ORAL
     Route: 048
     Dates: end: 20040916
  2. ZOXAN LP (DOXAZOSIN) (DOXAZOSIN) [Suspect]
     Indication: ILL-DEFINED DISORDER
     Dosage: ORAL
     Route: 048
     Dates: end: 20040916
  3. ROFECOXIB [Suspect]
     Indication: ILL-DEFINED DISORDER
     Dosage: ORAL
     Route: 048
     Dates: end: 20040901
  4. ACETAMINOPHEN AND TRAMADOL HCL [Suspect]
     Indication: ILL-DEFINED DISORDER
     Dosage: ORAL
     Route: 048
     Dates: end: 20040916
  5. AMIODARONE HCL [Suspect]
     Indication: ILL-DEFINED DISORDER
     Dosage: INTRAVENOUS
     Route: 042
     Dates: end: 20040916
  6. BETAHISTINE HYDROCHLORIDE (BETAHISTINE HYDROCHLORIDE) [Suspect]
     Indication: ILL-DEFINED DISORDER
     Dosage: ORAL
     Route: 048
     Dates: end: 20040916
  7. CLONIDINE [Concomitant]
  8. AMLODIPINE BESYLATE (AMLODIPINE BESYLATE) [Concomitant]
  9. LORAZEPAM [Concomitant]
  10. ACENOCOUMAROL (ACENOCOUMAROL) [Concomitant]
  11. POTASSIUM CHLORIDE [Concomitant]
  12. FOSINOPRIL SODIUM [Concomitant]
  13. PRAVASTATIN [Concomitant]

REACTIONS (3)
  - DERMATITIS [None]
  - ECZEMA [None]
  - TOXIC SKIN ERUPTION [None]
